FAERS Safety Report 7417684-6 (Version None)
Quarter: 2011Q2

REPORT INFORMATION
  Report Type: 
  Country: None (occurrence: None)
  Receive Date: 20110415
  Receipt Date: 20110331
  Transmission Date: 20111010
  Serious: Yes (Hospitalization)
  Sender: FDA-Public Use
  Company Number: JP-CELGENEUS-087-21880-11012821

PATIENT
  Age: 58 Year
  Sex: Male

DRUGS (17)
  1. LENADEX [Suspect]
     Dosage: 12 MILLIGRAM
     Route: 048
     Dates: start: 20101223, end: 20110106
  2. MUCOSTA [Concomitant]
     Indication: PROPHYLAXIS
     Dosage: 300 MILLIGRAM
     Route: 048
     Dates: start: 20110114, end: 20110121
  3. NISSEKI POLYGLOBIN-N [Concomitant]
     Indication: PROPHYLAXIS
     Dosage: 5 GRAM
     Route: 041
     Dates: start: 20101222, end: 20101222
  4. LENADEX [Suspect]
     Dosage: 12 MILLIGRAM
     Route: 048
     Dates: start: 20110203, end: 20110210
  5. LENADEX [Suspect]
     Indication: MULTIPLE MYELOMA
     Dosage: 12 MILLIGRAM
     Route: 048
     Dates: start: 20101125, end: 20101214
  6. GASTER D [Concomitant]
     Dosage: 20 MILLIGRAM
     Route: 048
     Dates: start: 20110126
  7. REVLIMID [Suspect]
     Dosage: 25 MILLIGRAM
     Route: 048
     Dates: start: 20101222, end: 20110111
  8. BAKTAR [Concomitant]
     Indication: PROPHYLAXIS
     Dosage: 1 TABLET
     Route: 048
     Dates: start: 20100430, end: 20110111
  9. ASPIRIN [Concomitant]
     Indication: PROPHYLAXIS
     Dosage: 100 MILLIGRAM
     Route: 048
     Dates: start: 20110202
  10. BAKTAR [Concomitant]
     Dosage: 1 TABLET
     Route: 048
     Dates: start: 20110126
  11. GASTER D [Concomitant]
     Indication: PROPHYLAXIS
     Dosage: 20 MILLIGRAM
     Route: 048
     Dates: start: 20101117, end: 20110111
  12. THALED [Concomitant]
     Route: 065
  13. REVLIMID [Suspect]
     Indication: MULTIPLE MYELOMA
     Dosage: 25 MILLIGRAM
     Route: 048
     Dates: start: 20101124, end: 20101214
  14. REVLIMID [Suspect]
     Dosage: 25 MILLIGRAM
     Route: 048
     Dates: start: 20110126, end: 20110215
  15. LENADEX [Suspect]
     Dosage: 12 MILLIGRAM
     Route: 048
     Dates: start: 20110127, end: 20110127
  16. GENINAX [Concomitant]
     Indication: PROPHYLAXIS
     Dosage: 400 MILLIGRAM
     Route: 048
     Dates: start: 20110126
  17. ZOVIRAX [Concomitant]
     Indication: PROPHYLAXIS
     Dosage: 200 MILLIGRAM
     Route: 048
     Dates: start: 20110217

REACTIONS (8)
  - GAMMA-GLUTAMYLTRANSFERASE INCREASED [None]
  - INFLUENZA [None]
  - PLATELET COUNT DECREASED [None]
  - ALANINE AMINOTRANSFERASE INCREASED [None]
  - NEUTROPHIL COUNT DECREASED [None]
  - WHITE BLOOD CELL COUNT DECREASED [None]
  - HEPATOBILIARY DISEASE [None]
  - PNEUMONIA [None]
